FAERS Safety Report 23036126 (Version 1)
Quarter: 2023Q4

REPORT INFORMATION
  Report Type: Spontaneous
  Country: US (occurrence: US)
  Receive Date: 20231006
  Receipt Date: 20231006
  Transmission Date: 20240110
  Serious: No
  Sender: FDA-Public Use
  Company Number: US-INDIVIOR US-INDV-138710-2023

PATIENT
  Age: 55 Year
  Sex: Male

DRUGS (16)
  1. SUBOXONE [Suspect]
     Active Substance: BUPRENORPHINE HYDROCHLORIDE\NALOXONE HYDROCHLORIDE
     Indication: Drug dependence
     Dosage: UNK
     Route: 065
     Dates: start: 201601, end: 201708
  2. SUBOXONE [Suspect]
     Active Substance: BUPRENORPHINE HYDROCHLORIDE\NALOXONE HYDROCHLORIDE
     Dosage: UNK, TID
     Route: 065
     Dates: start: 201708, end: 201710
  3. SUBOXONE [Suspect]
     Active Substance: BUPRENORPHINE HYDROCHLORIDE\NALOXONE HYDROCHLORIDE
     Dosage: 1.5 TABLETS
     Route: 065
     Dates: start: 201710, end: 201712
  4. SUBOXONE [Suspect]
     Active Substance: BUPRENORPHINE HYDROCHLORIDE\NALOXONE HYDROCHLORIDE
     Dosage: DOSE LOWERED
     Route: 065
     Dates: start: 201712, end: 201801
  5. SUBOXONE [Suspect]
     Active Substance: BUPRENORPHINE HYDROCHLORIDE\NALOXONE HYDROCHLORIDE
     Dosage: DOSE INCREASED TO 1.5 TABLETS DAILY
     Route: 065
     Dates: start: 201801, end: 201805
  6. SUBOXONE [Suspect]
     Active Substance: BUPRENORPHINE HYDROCHLORIDE\NALOXONE HYDROCHLORIDE
     Dosage: DOSE LOWERED TO 30 TABLETS PER MONTH
     Route: 065
     Dates: start: 201805, end: 201808
  7. SUBOXONE [Suspect]
     Active Substance: BUPRENORPHINE HYDROCHLORIDE\NALOXONE HYDROCHLORIDE
     Dosage: DOSE INCREASED TO 1.5 TABLETS DAILY
     Route: 065
     Dates: start: 201808, end: 201811
  8. SUBOXONE [Suspect]
     Active Substance: BUPRENORPHINE HYDROCHLORIDE\NALOXONE HYDROCHLORIDE
     Dosage: DOSE INCREASED TO 2 TABLETS DAILY
     Route: 065
     Dates: start: 201811, end: 201901
  9. SUBOXONE [Suspect]
     Active Substance: BUPRENORPHINE HYDROCHLORIDE\NALOXONE HYDROCHLORIDE
     Dosage: DOSE LOWERED TO 1.5 TABLETS DAILY
     Route: 065
     Dates: start: 201901, end: 201904
  10. SUBOXONE [Suspect]
     Active Substance: BUPRENORPHINE HYDROCHLORIDE\NALOXONE HYDROCHLORIDE
     Dosage: DOUBLES PRESCRIPTION TO 3 TABLETS DAILY
     Route: 065
     Dates: start: 201904, end: 201907
  11. SUBOXONE [Suspect]
     Active Substance: BUPRENORPHINE HYDROCHLORIDE\NALOXONE HYDROCHLORIDE
     Dosage: DOSE CHANGED TO 1.5 TABLETS PER DAY
     Route: 065
     Dates: start: 201907, end: 201909
  12. SUBOXONE [Suspect]
     Active Substance: BUPRENORPHINE HYDROCHLORIDE\NALOXONE HYDROCHLORIDE
     Dosage: DOSE INCREASED TO 2 TABLETS DAILY
     Route: 065
     Dates: start: 201909, end: 20200128
  13. SUBOXONE [Suspect]
     Active Substance: BUPRENORPHINE HYDROCHLORIDE\NALOXONE HYDROCHLORIDE
     Indication: Drug dependence
     Dosage: UNK
     Route: 065
     Dates: start: 202002, end: 20210302
  14. SOMA [Suspect]
     Active Substance: CARISOPRODOL
     Indication: Product used for unknown indication
     Dosage: UNK
     Route: 065
     Dates: start: 201601
  15. AMBIEN [Suspect]
     Active Substance: ZOLPIDEM TARTRATE
     Indication: Product used for unknown indication
     Dosage: UNK
     Route: 065
     Dates: start: 201601
  16. ADDERALL [Suspect]
     Active Substance: AMPHETAMINE ASPARTATE\AMPHETAMINE SULFATE\DEXTROAMPHETAMINE SACCHARATE\DEXTROAMPHETAMINE SULFATE
     Indication: Attention deficit hyperactivity disorder
     Dosage: UNK
     Route: 065
     Dates: start: 202001

REACTIONS (5)
  - Attention deficit hyperactivity disorder [Recovered/Resolved]
  - Autonomic nervous system imbalance [Unknown]
  - Drug withdrawal syndrome [Unknown]
  - Inappropriate schedule of product administration [Recovered/Resolved]
  - Wrong technique in product usage process [Recovered/Resolved]

NARRATIVE: CASE EVENT DATE: 20170801
